FAERS Safety Report 4286910-7 (Version None)
Quarter: 2004Q1

REPORT INFORMATION
  Report Type: 
  Country: None (occurrence: None)
  Receive Date: 20040128
  Receipt Date: 20040122
  Transmission Date: 20041129
  Serious: Yes (Death)
  Sender: FDA-Public Use
  Company Number: KII-1999-0001282

PATIENT
  Sex: Female

DRUGS (3)
  1. OXYCONTIN [Suspect]
     Indication: PAIN
  2. MORPHINE [Suspect]
     Indication: PAIN
     Dosage: EPIDURAL
     Route: 008
  3. ANAESTHETIC [Suspect]
     Indication: PAIN
     Dosage: EPIDURAL
     Route: 008

REACTIONS (1)
  - DEATH [None]
